FAERS Safety Report 9266571 (Version 14)
Quarter: 2016Q1

REPORT INFORMATION
  Report Type: Report from Study
  Country: CA (occurrence: CA)
  Receive Date: 20130502
  Receipt Date: 20160322
  Transmission Date: 20160526
  Serious: Yes (Hospitalization, Other)
  Sender: FDA-Public Use
  Company Number: PHHY2013CA039784

PATIENT
  Age: 82 Year
  Sex: Male

DRUGS (2)
  1. SANDOSTATIN LAR DEPOT [Suspect]
     Active Substance: OCTREOTIDE ACETATE
     Indication: METASTATIC CARCINOID TUMOUR
     Dosage: 20 MG, QMO (EVERY 4 WEEKS)
     Route: 030
     Dates: start: 20050812
  2. SANDOSTATIN LAR DEPOT [Suspect]
     Active Substance: OCTREOTIDE ACETATE
     Dosage: 30 MG, QMO (EVERY 4 WEEKS)
     Route: 030

REACTIONS (10)
  - Heart rate decreased [Unknown]
  - Gastrointestinal haemorrhage [Unknown]
  - Blood pressure systolic increased [Unknown]
  - Injection site pain [Unknown]
  - Diarrhoea [Unknown]
  - Weight decreased [Unknown]
  - Urinary incontinence [Unknown]
  - Blood pressure diastolic decreased [Unknown]
  - Body temperature decreased [Unknown]
  - Haemoglobin decreased [Unknown]

NARRATIVE: CASE EVENT DATE: 201303
